FAERS Safety Report 18887191 (Version 2)
Quarter: 2021Q1

REPORT INFORMATION
  Report Type: Report from Study
  Country: CN (occurrence: CN)
  Receive Date: 20210212
  Receipt Date: 20210216
  Transmission Date: 20210420
  Serious: Yes (Life-Threatening, Hospitalization, Disabling, Other)
  Sender: FDA-Public Use
  Company Number: CN-ASTRAZENECA-2020SF66998

PATIENT
  Age: 23325 Day
  Sex: Male
  Weight: 70 kg

DRUGS (9)
  1. DIAMMONIUM GLYCYRRHIZINATE ENTERIC?COATED CAPSULES [Concomitant]
     Indication: PROPHYLAXIS
     Route: 048
     Dates: start: 20201113
  2. COMPOUND MONOAMMONIUM GLYCYRRHIZINATE INJECTION [Concomitant]
     Indication: PROPHYLAXIS
     Route: 042
     Dates: start: 20201104, end: 20201105
  3. COMPOUND VITAMINE [Concomitant]
     Indication: VITAMIN SUPPLEMENTATION
     Dosage: DAILY
     Route: 042
     Dates: start: 20201104, end: 20201105
  4. ACALABRUTINIB. [Suspect]
     Active Substance: ACALABRUTINIB
     Indication: MANTLE CELL LYMPHOMA
     Route: 048
     Dates: start: 20200923, end: 20201213
  5. ACALABRUTINIB. [Suspect]
     Active Substance: ACALABRUTINIB
     Indication: MANTLE CELL LYMPHOMA
     Route: 048
     Dates: start: 20201214, end: 20201214
  6. PANTOPRAZOLE SODIUM. [Concomitant]
     Active Substance: PANTOPRAZOLE SODIUM
     Indication: PROPHYLAXIS
     Route: 042
     Dates: start: 20201104, end: 20201105
  7. POLYENE PHOSPHATIDYLCHOLINE CAPSULES [Concomitant]
     Indication: PROPHYLAXIS
     Route: 048
     Dates: start: 20201113
  8. FEBUXOSTAT. [Concomitant]
     Active Substance: FEBUXOSTAT
     Indication: PROPHYLAXIS
     Route: 048
     Dates: start: 20201025, end: 20201101
  9. POLYENE PHOSPHATIDYLCHOLINE CAPSULES [Concomitant]
     Indication: PROPHYLAXIS
     Route: 048
     Dates: start: 20201106, end: 20201111

REACTIONS (2)
  - Aplastic anaemia [Not Recovered/Not Resolved]
  - Platelet count decreased [Not Recovered/Not Resolved]

NARRATIVE: CASE EVENT DATE: 20201212
